FAERS Safety Report 7584826-1 (Version None)
Quarter: 2011Q2

REPORT INFORMATION
  Report Type: 
  Country: None (occurrence: None)
  Receive Date: 20110630
  Receipt Date: 20110624
  Transmission Date: 20111010
  Serious: Yes (Hospitalization, Other)
  Sender: FDA-Public Use
  Company Number: PHEH2008US00461

PATIENT
  Sex: Male
  Weight: 136.6 kg

DRUGS (45)
  1. AREDIA [Suspect]
     Dosage: UNK
     Dates: end: 20051111
  2. ZOMETA [Suspect]
     Dosage: 4 MG, UNK
     Dates: start: 20030110, end: 20030506
  3. ALBUTEROL SULFATE AUTOHALER [Concomitant]
     Dosage: UNK
  4. PRILOSEC [Concomitant]
  5. AREDIA [Suspect]
     Dosage: 90 MG, QMO
     Route: 042
     Dates: start: 20000216, end: 20040101
  6. INH [Concomitant]
     Dosage: UNK
  7. CLOTRIMAZOLE ^POLFA^ [Concomitant]
     Dosage: UNK
  8. FLUZONE [Concomitant]
     Dosage: UNK
  9. OMEPRAZOLE [Concomitant]
     Dosage: UNK
  10. ZOMETA [Suspect]
     Dosage: 4 MG, UNK
     Route: 042
     Dates: start: 20040101
  11. CIPRO [Concomitant]
     Dosage: 500 MG
  12. PENICILLIN VK [Concomitant]
     Dosage: UNK
  13. SINEMET [Concomitant]
     Dosage: UNK
  14. VITAMIN D [Concomitant]
  15. SELENIUM [Concomitant]
  16. MAGNESIUM [Concomitant]
  17. AREDIA [Suspect]
     Dosage: UNK
     Dates: start: 20050101
  18. FLURAZEPAM [Concomitant]
     Dosage: 30 MG
  19. MYSOLINE [Concomitant]
     Dosage: UNK
  20. BACITRACIN OPHTHALMIC OINTMENT [Concomitant]
     Dosage: UNK
  21. DALMANE [Concomitant]
     Dosage: 40 MG BY MOUTH AT BEDTIME
  22. FAMVIR                                  /NET/ [Concomitant]
     Dosage: UNK
  23. FLUCONAZOLE [Concomitant]
     Dosage: UNK
  24. VITAMIN B6 [Concomitant]
  25. ASPIRIN [Concomitant]
  26. SULFAMETHIZOLE TAB [Concomitant]
  27. MORPHINE [Concomitant]
  28. PREDNISONE [Concomitant]
  29. DAPSONE [Concomitant]
     Dosage: 100 MG
  30. ESZOPICLONE [Concomitant]
     Dosage: 2 MG
  31. ACYCLOVIR [Concomitant]
     Dosage: UNK
  32. CALCIUM CARBONATE [Concomitant]
     Dosage: UNK
  33. RANITIN [Concomitant]
     Dosage: UNK
  34. CARBIDOPA + LEVODOPA [Concomitant]
     Dosage: UNK
  35. TOBRADEX [Concomitant]
     Dosage: UNK
  36. EPOGEN [Concomitant]
     Dosage: UNK
  37. MULTI-VITAMINS [Concomitant]
  38. ISONIAZID [Concomitant]
  39. SEREVENT [Concomitant]
     Dosage: UNK
  40. AMOXICILLIN [Concomitant]
     Dosage: 500 MG
  41. LOPROX [Concomitant]
     Dosage: UNK
  42. ZANTAC [Concomitant]
     Dosage: 150 MG BY MOUTH
  43. BACTRIM [Concomitant]
     Dosage: UNK
  44. LUNESTA [Concomitant]
  45. PROVENTIL [Concomitant]

REACTIONS (46)
  - OSTEONECROSIS OF JAW [None]
  - FATIGUE [None]
  - TOOTH ABSCESS [None]
  - CYST [None]
  - OSTEOPENIA [None]
  - IMPAIRED HEALING [None]
  - X-RAY ABNORMAL [None]
  - RIB FRACTURE [None]
  - HEPATOMEGALY [None]
  - PAIN [None]
  - AZOTAEMIA [None]
  - ANAEMIA [None]
  - SPINAL DEFORMITY [None]
  - OSTEITIS [None]
  - BONE LESION [None]
  - EDENTULOUS [None]
  - CELLULITIS [None]
  - PROSTATIC SPECIFIC ANTIGEN INCREASED [None]
  - FISTULA [None]
  - GINGIVITIS [None]
  - SKIN LESION [None]
  - NEUROPATHY PERIPHERAL [None]
  - VISUAL ACUITY REDUCED [None]
  - ANXIETY [None]
  - SWELLING [None]
  - POOR PERSONAL HYGIENE [None]
  - INFECTION [None]
  - TONGUE DISORDER [None]
  - BONE LOSS [None]
  - ANHEDONIA [None]
  - DENTURE WEARER [None]
  - DIVERTICULITIS [None]
  - MASTICATION DISORDER [None]
  - RETINAL TEAR [None]
  - GINGIVAL RECESSION [None]
  - HYPOGAMMAGLOBULINAEMIA [None]
  - PLASMACYTOSIS [None]
  - INJURY [None]
  - BONE DISORDER [None]
  - POLYP COLORECTAL [None]
  - AORTIC DISORDER [None]
  - ASTIGMATISM [None]
  - GOITRE [None]
  - DENTAL PROSTHESIS USER [None]
  - WOUND DEHISCENCE [None]
  - RETINOPATHY [None]
